FAERS Safety Report 7546675-X (Version None)
Quarter: 2011Q2

REPORT INFORMATION
  Report Type: 
  Country: None (occurrence: None)
  Receive Date: 20110614
  Receipt Date: 20110607
  Transmission Date: 20111010
  Serious: Yes (Death, Life-Threatening, Hospitalization, Other)
  Sender: FDA-Public Use
  Company Number: JP-ROCHE-726637

PATIENT
  Sex: Female
  Weight: 35 kg

DRUGS (17)
  1. OXALIPLATIN [Concomitant]
     Dosage: DOSAGE IS UNCERTAIN
     Route: 041
     Dates: start: 20090212, end: 20090521
  2. FLUOROURACIL [Concomitant]
     Dosage: DOSAGE IS UNCERTAIN
     Route: 041
     Dates: start: 20090212, end: 20090501
  3. AVASTIN [Suspect]
     Route: 041
     Dates: start: 20100510, end: 20100827
  4. LEUCOVORIN CALCIUM [Concomitant]
     Dosage: DOSAGE IS UNCERTAIN
     Route: 041
     Dates: start: 20100510
  5. IRINOTECAN HCL [Concomitant]
     Dosage: DOSAGE IS UNCERTAIN
     Route: 041
     Dates: start: 20091124, end: 20100413
  6. ERBITUX [Suspect]
     Indication: COLON CANCER METASTATIC
     Route: 041
     Dates: start: 20091124, end: 20100413
  7. FLUOROURACIL [Concomitant]
     Dosage: DOSAGE IS UNCERTAIN.
     Route: 040
     Dates: start: 20090629, end: 20091109
  8. FLUOROURACIL [Concomitant]
     Dosage: DOSAGE IS UNCERTAIN
     Route: 041
     Dates: start: 20100510
  9. IRINOTECAN HCL [Concomitant]
     Dosage: DOSAGE IS UNCERTAIN
     Route: 041
     Dates: start: 20090629, end: 20091109
  10. OXALIPLATIN [Concomitant]
     Dosage: DOSAGE IS UNCERTAIN
     Route: 041
     Dates: start: 20100510
  11. FLUOROURACIL [Concomitant]
     Dosage: DOSAGE IS UNCERTAIN
     Route: 040
     Dates: start: 20100510
  12. LEUCOVORIN CALCIUM [Concomitant]
     Dosage: DOSAGE IS UNCERTAIN
     Route: 041
     Dates: start: 20090629, end: 20091109
  13. LEUCOVORIN CALCIUM [Concomitant]
     Dosage: DOSAGE IS UNCERTAIN
     Route: 041
     Dates: start: 20090212, end: 20090501
  14. FLUOROURACIL [Concomitant]
     Dosage: DOSAGE IS UNCERTAIN
     Route: 040
     Dates: start: 20090212, end: 20090521
  15. AVASTIN [Suspect]
     Indication: COLON CANCER METASTATIC
     Route: 041
     Dates: start: 20090212, end: 20090521
  16. AVASTIN [Suspect]
     Route: 041
     Dates: start: 20090629, end: 20091109
  17. FLUOROURACIL [Concomitant]
     Dosage: DOSAGE IS UNCERTAIN
     Route: 041
     Dates: start: 20090629, end: 20091101

REACTIONS (5)
  - DISEASE PROGRESSION [None]
  - PERITONITIS [None]
  - LARGE INTESTINE PERFORATION [None]
  - DERMATITIS ACNEIFORM [None]
  - DISSEMINATED INTRAVASCULAR COAGULATION [None]
